FAERS Safety Report 21169410 (Version 1)
Quarter: 2022Q3

REPORT INFORMATION
  Report Type: Spontaneous
  Country: IT (occurrence: IT)
  Receive Date: 20220804
  Receipt Date: 20220804
  Transmission Date: 20221027
  Serious: Yes (Hospitalization)
  Sender: FDA-Public Use
  Company Number: None

PATIENT
  Age: 72 Year
  Sex: Female

DRUGS (4)
  1. FLUOROURACIL [Suspect]
     Active Substance: FLUOROURACIL
     Indication: Adenocarcinoma of colon
     Dosage: FLUOROURACILE TEVA , UNIT DOSE : 499.2 MG  , FREQUENCY TIME :21 DAY   , DURATION : 32 DAY
     Dates: start: 20220411, end: 20220513
  2. FLUOROURACIL [Suspect]
     Active Substance: FLUOROURACIL
     Dosage: FLUOROURACILE TEVA , UNIT DOSE : 2995.2 MG  , FREQUENCY TIME :21 DAY   , DURATION : 32 DAY
     Dates: start: 20220411, end: 20220513
  3. OXALIPLATIN [Suspect]
     Active Substance: OXALIPLATIN
     Indication: Adenocarcinoma of colon
     Dosage: OXALIPLATINO ACCORD , UNIT DOSE :108.8 MG   , FREQUENCY TIME : 21 DAYS  , DURATION : 32 DAYS
     Dates: start: 20220411, end: 20220513
  4. BEVACIZUMAB [Suspect]
     Active Substance: BEVACIZUMAB
     Indication: Adenocarcinoma of colon
     Dosage: UNIT DOSE :275 MG   ,  DURATION : 21 DAYS
     Dates: start: 20220411, end: 20220513

REACTIONS (2)
  - Anaemia [Recovering/Resolving]
  - Thrombocytopenia [Recovering/Resolving]

NARRATIVE: CASE EVENT DATE: 20220613
